FAERS Safety Report 8586255-0 (Version None)
Quarter: 2012Q3

REPORT INFORMATION
  Report Type: 
  Country: None (occurrence: None)
  Receive Date: 20120810
  Receipt Date: 20120802
  Transmission Date: 20120928
  Serious: No
  Sender: FDA-Public Use
  Company Number: US-ASTRAZENECA-2012SE33189

PATIENT
  Age: 54 Year
  Sex: Male
  Weight: 87.1 kg

DRUGS (9)
  1. SEROQUEL XR [Suspect]
     Dosage: 50-100
     Route: 048
  2. SIMVASTATIN [Concomitant]
     Indication: ANTICOAGULANT THERAPY
  3. SEROQUEL XR [Suspect]
     Indication: SLEEP DISORDER
     Route: 048
     Dates: start: 20050101
  4. WARFARIN SODIUM [Concomitant]
     Indication: BLOOD CHOLESTEROL
  5. WARFARIN SODIUM [Concomitant]
     Indication: FAT TISSUE INCREASED
  6. SIMVASTATIN [Concomitant]
     Indication: HEART VALVE OPERATION
  7. DEPAKOTE [Concomitant]
  8. ASPIRIN [Concomitant]
     Indication: CARDIAC DISORDER
  9. LITHIUM CARBONATE [Concomitant]
     Indication: BIPOLAR DISORDER

REACTIONS (2)
  - INSOMNIA [None]
  - DRUG DOSE OMISSION [None]
